FAERS Safety Report 5567092-8 (Version None)
Quarter: 2007Q4

REPORT INFORMATION
  Report Type: 
  Country: None (occurrence: None)
  Receive Date: 20071219
  Receipt Date: 20060814
  Transmission Date: 20080405
  Serious: Yes (Death)
  Sender: FDA-Public Use
  Company Number: AR-ROCHE-459478

PATIENT
  Age: 82 Year
  Sex: Female

DRUGS (1)
  1. XELODA [Suspect]
     Indication: BREAST CANCER
     Route: 048
     Dates: start: 20060127, end: 20060101

REACTIONS (3)
  - ASTHENIA [None]
  - DEATH [None]
  - DIARRHOEA [None]
